FAERS Safety Report 5647476-X (Version None)
Quarter: 2008Q1

REPORT INFORMATION
  Report Type: 
  Country: None (occurrence: None)
  Receive Date: 20080303
  Receipt Date: 20080226
  Transmission Date: 20080703
  Serious: Yes (Death)
  Sender: FDA-Public Use
  Company Number: DE-BAYER-200813880GPV

PATIENT
  Age: 62 Year
  Sex: Male

DRUGS (1)
  1. AVELOX [Suspect]
     Indication: NASAL ABSCESS
     Route: 048
     Dates: start: 20080201

REACTIONS (7)
  - CARDIAC ARREST [None]
  - ERYTHEMA [None]
  - HYPERSENSITIVITY [None]
  - INFLUENZA [None]
  - MYOCARDIAL INFARCTION [None]
  - OEDEMA PERIPHERAL [None]
  - PAIN [None]
